FAERS Safety Report 14368024 (Version 2)
Quarter: 2018Q1

REPORT INFORMATION
  Report Type: Spontaneous
  Country: US (occurrence: US)
  Receive Date: 20180109
  Receipt Date: 20180201
  Transmission Date: 20180509
  Serious: Yes (Other)
  Sender: FDA-Public Use
  Company Number: US-PFIZER INC-2016582491

PATIENT
  Age: 79 Year
  Sex: Female
  Weight: 58.97 kg

DRUGS (23)
  1. TYLENOL WITH CODEINE [Concomitant]
     Active Substance: ACETAMINOPHEN\CODEINE PHOSPHATE
     Indication: COUGH
     Dosage: 1 TABLET, DAILY AS NEEDED
     Route: 048
  2. ELIQUIS [Concomitant]
     Active Substance: APIXABAN
     Indication: CEREBROVASCULAR ACCIDENT
     Dosage: 1 TABLET (2.5 MG), TWICE A DAY
     Route: 048
  3. PANTOPRAZOLE [Concomitant]
     Active Substance: PANTOPRAZOLE
     Dosage: 40 MG, ONE DAILY
  4. PRAVASTATIN. [Concomitant]
     Active Substance: PRAVASTATIN
     Indication: BLOOD CHOLESTEROL ABNORMAL
     Dosage: 40 MG, ONE DAILY
  5. ASPIRIN. [Concomitant]
     Active Substance: ASPIRIN
     Dosage: 81 MG, DAILY
  6. PROTONIX [Concomitant]
     Active Substance: PANTOPRAZOLE SODIUM
     Dosage: 1 TABLET (40 MG), DAILY
     Route: 048
  7. ACETAMINOPHEN AND CODEINE [Concomitant]
     Active Substance: ACETAMINOPHEN\CODEINE PHOSPHATE
     Dosage: 300-30 MG, ONE DAILY
  8. ZETIA [Concomitant]
     Active Substance: EZETIMIBE
     Dosage: 1 TABLET (10MG) DAILY
     Route: 048
  9. ELIQUIS [Concomitant]
     Active Substance: APIXABAN
     Dosage: 12.5 MG, 2X/DAY
  10. TEMAZEPAM. [Concomitant]
     Active Substance: TEMAZEPAM
     Dosage: 15 MG, 1X/DAY (HS)
     Route: 048
  11. TEMAZEPAM. [Concomitant]
     Active Substance: TEMAZEPAM
     Dosage: 15 MG, AS NEEDED
  12. NITROSTAT [Concomitant]
     Active Substance: NITROGLYCERIN
     Indication: CHEST PAIN
     Dosage: 0.4 MG, AS NEEDED
     Route: 060
  13. VITAMIN D3 [Concomitant]
     Active Substance: CHOLECALCIFEROL
     Dosage: 1000 IU, DAILY
     Route: 048
  14. AMLODIPINE [Concomitant]
     Active Substance: AMLODIPINE BESYLATE
     Indication: CARDIOVASCULAR DISORDER
     Dosage: 5MG, ONE DAILY
  15. GABAPENTIN. [Concomitant]
     Active Substance: GABAPENTIN
     Indication: BLADDER PROLAPSE
     Dosage: 300 MG, ONE DAILY
  16. PREMARIN [Suspect]
     Active Substance: ESTROGENS, CONJUGATED
     Indication: BLADDER PROLAPSE
     Dosage: 0.5 GRAMS HS, 3 TIMES WEEKLY, 0.5 GM Q PM; 2-3 WEEKLY)
     Route: 067
     Dates: start: 201504
  17. COREG [Concomitant]
     Active Substance: CARVEDILOL
     Indication: CEREBROVASCULAR ACCIDENT
     Dosage: 12.5 MG, TWICE A DAY
  18. FISH OIL [Concomitant]
     Active Substance: FISH OIL
     Dosage: ONE CAPSULE (1000 MG) DAILY
     Route: 048
  19. NORVASC [Concomitant]
     Active Substance: AMLODIPINE BESYLATE
     Dosage: 5 MG, DAILY
     Route: 048
  20. NEURONTIN [Concomitant]
     Active Substance: GABAPENTIN
     Dosage: 300 MG, 1X/DAY (HS)
     Route: 048
  21. FLONASE [Concomitant]
     Active Substance: FLUTICASONE PROPIONATE
     Indication: HYPERSENSITIVITY
     Dosage: 1 SPRAY IN EACH NOSTRIL DAILY AS NEEDED
     Route: 045
  22. CARVEDILOL. [Concomitant]
     Active Substance: CARVEDILOL
     Dosage: 2.5 MG, 2X/DAY
  23. ISOSORBIDE MONO [Concomitant]
     Indication: CARDIAC DISORDER
     Dosage: 1 TABLET (60 MG) DAILY (QAM)
     Route: 048

REACTIONS (5)
  - Bronchitis [Not Recovered/Not Resolved]
  - Product use issue [Unknown]
  - Expired product administered [Unknown]
  - Product use in unapproved indication [Unknown]
  - Sinusitis [Not Recovered/Not Resolved]

NARRATIVE: CASE EVENT DATE: 201504
